FAERS Safety Report 14843515 (Version 2)
Quarter: 2019Q3

REPORT INFORMATION
  Report Type: Spontaneous
  Country: US (occurrence: US)
  Receive Date: 20180503
  Receipt Date: 20190718
  Transmission Date: 20191004
  Serious: Yes (Other)
  Sender: FDA-Public Use
  Company Number: US-ASTRAZENECA-2018SE52517

PATIENT
  Age: 23830 Day
  Sex: Female
  Weight: 69.9 kg

DRUGS (34)
  1. PRILOSEC [Suspect]
     Active Substance: OMEPRAZOLE MAGNESIUM
     Indication: GASTROOESOPHAGEAL REFLUX DISEASE
     Route: 048
     Dates: start: 1998, end: 2015
  2. TRIAMT/HCTZ [Concomitant]
     Active Substance: HYDROCHLOROTHIAZIDE\TRIAMTERENE
  3. ZESTRIL [Concomitant]
     Active Substance: LISINOPRIL
  4. VITAMIN D [Concomitant]
     Active Substance: VITAMIN D NOS
  5. ASPIRIN. [Concomitant]
     Active Substance: ASPIRIN
  6. MENEST [Concomitant]
     Active Substance: ESTROGENS, ESTERIFIED
  7. PRILOSEC [Suspect]
     Active Substance: OMEPRAZOLE MAGNESIUM
     Indication: GASTROOESOPHAGEAL REFLUX DISEASE
     Route: 048
     Dates: start: 1997, end: 2001
  8. AMITRIPTYLINE [Concomitant]
     Active Substance: AMITRIPTYLINE
  9. LORAZEPAM. [Concomitant]
     Active Substance: LORAZEPAM
  10. MEDROXYPROGESTERONE [Concomitant]
     Active Substance: MEDROXYPROGESTERONE
  11. NITROSTAT [Concomitant]
     Active Substance: NITROGLYCERIN
  12. ZANAFLEX [Concomitant]
     Active Substance: TIZANIDINE HYDROCHLORIDE
  13. DULOXETINE. [Concomitant]
     Active Substance: DULOXETINE
  14. PRILOSEC [Suspect]
     Active Substance: OMEPRAZOLE MAGNESIUM
     Indication: GASTROOESOPHAGEAL REFLUX DISEASE
     Dosage: GENERIC OMEPRAZOLE
     Route: 048
     Dates: start: 2010, end: 2016
  15. PRAVACHOL [Concomitant]
     Active Substance: PRAVASTATIN SODIUM
  16. CELEXA [Concomitant]
     Active Substance: CITALOPRAM HYDROBROMIDE
  17. GABAPENTIN. [Concomitant]
     Active Substance: GABAPENTIN
  18. SERTRALINE [Concomitant]
     Active Substance: SERTRALINE HYDROCHLORIDE
  19. LYRICA [Concomitant]
     Active Substance: PREGABALIN
  20. IBUPROFEN. [Concomitant]
     Active Substance: IBUPROFEN
  21. EFFEXOR [Concomitant]
     Active Substance: VENLAFAXINE HYDROCHLORIDE
  22. PAXIL [Concomitant]
     Active Substance: PAROXETINE HYDROCHLORIDE
  23. ATENOLOL. [Concomitant]
     Active Substance: ATENOLOL
  24. GEMFIBROZIL. [Concomitant]
     Active Substance: GEMFIBROZIL
  25. FAMOTIDINE. [Concomitant]
     Active Substance: FAMOTIDINE
  26. RANITIDINE. [Concomitant]
     Active Substance: RANITIDINE
  27. CELEBREX [Concomitant]
     Active Substance: CELECOXIB
  28. SIMVASTATIN. [Concomitant]
     Active Substance: SIMVASTATIN
  29. CYMBALTA [Concomitant]
     Active Substance: DULOXETINE HYDROCHLORIDE
  30. PROTONIX [Suspect]
     Active Substance: PANTOPRAZOLE SODIUM
     Indication: GASTROOESOPHAGEAL REFLUX DISEASE
     Route: 065
     Dates: start: 1998, end: 2015
  31. PROTONIX [Suspect]
     Active Substance: PANTOPRAZOLE SODIUM
     Indication: GASTROOESOPHAGEAL REFLUX DISEASE
     Route: 065
     Dates: start: 2001, end: 2002
  32. LIPITOR [Concomitant]
     Active Substance: ATORVASTATIN CALCIUM
  33. PROMETHAZINE [Concomitant]
     Active Substance: PROMETHAZINE HYDROCHLORIDE
  34. ZITHROMAX [Concomitant]
     Active Substance: AZITHROMYCIN DIHYDRATE

REACTIONS (2)
  - Chronic kidney disease [Not Recovered/Not Resolved]
  - Acute kidney injury [Not Recovered/Not Resolved]

NARRATIVE: CASE EVENT DATE: 20190401
